FAERS Safety Report 15710038 (Version 1)
Quarter: 2018Q4

REPORT INFORMATION
  Report Type: Spontaneous
  Country: NL (occurrence: NL)
  Receive Date: 20181211
  Receipt Date: 20181211
  Transmission Date: 20190205
  Serious: Yes (Hospitalization)
  Sender: FDA-Public Use
  Company Number: PHHY2018NL178841

PATIENT
  Age: 72 Year
  Sex: Female
  Weight: 53 kg

DRUGS (2)
  1. METRONIDAZOLE. [Suspect]
     Active Substance: METRONIDAZOLE
     Indication: CHOLECYSTITIS
     Dosage: 500 MG, QD (3 KEER PER DAG 1 STUK(S), EXTRA INFO: LET OP: 3 DD 500 MG IV)
     Route: 042
     Dates: start: 20140918
  2. CEFTAZIDIME. [Suspect]
     Active Substance: CEFTAZIDIME
     Indication: CHOLECYSTITIS
     Dosage: 2000 MG, QD, 1 KEER PER DAG 1 STUK(S), EXTRA INFO: 1 DD 2000 MG IV
     Route: 042
     Dates: start: 20140918

REACTIONS (4)
  - Hypophagia [Not Recovered/Not Resolved]
  - Weight decreased [Unknown]
  - Dysgeusia [Not Recovered/Not Resolved]
  - Hyponatraemia [Unknown]

NARRATIVE: CASE EVENT DATE: 20140921
